FAERS Safety Report 21706397 (Version 2)
Quarter: 2023Q1

REPORT INFORMATION
  Report Type: Spontaneous
  Country: US (occurrence: US)
  Receive Date: 20221209
  Receipt Date: 20230107
  Transmission Date: 20230418
  Serious: Yes (Hospitalization, Other)
  Sender: FDA-Public Use
  Company Number: US-009507513-2212USA002076

PATIENT
  Sex: Female
  Weight: 55.9 kg

DRUGS (16)
  1. KEYTRUDA [Suspect]
     Active Substance: PEMBROLIZUMAB
     Indication: Breast cancer
     Dosage: 200 MILLIGRAM, Q3W
     Route: 041
     Dates: start: 202206
  2. ADRIAMYCIN [Suspect]
     Active Substance: DOXORUBICIN HYDROCHLORIDE
     Dosage: UNK UNK, ONCE
     Route: 040
     Dates: start: 20220525, end: 20220622
  3. CYTOXAN [Suspect]
     Active Substance: CYCLOPHOSPHAMIDE
     Dosage: UNK
     Dates: start: 202206
  4. TAXOL [Suspect]
     Active Substance: PACLITAXEL
     Dosage: UNK
     Dates: start: 202206, end: 20220907
  5. CARBOPLATIN [Suspect]
     Active Substance: CARBOPLATIN
     Dosage: UNK
     Dates: start: 202206, end: 20220907
  6. OXYCODONE AND ACETAMINOPHEN [Concomitant]
     Active Substance: ACETAMINOPHEN\OXYCODONE HYDROCHLORIDE
     Dosage: 7.5 MILLIGRAM, QID
  7. ADDERALL [Concomitant]
     Active Substance: AMPHETAMINE ASPARTATE\AMPHETAMINE SULFATE\DEXTROAMPHETAMINE SACCHARATE\DEXTROAMPHETAMINE SULFATE
     Indication: Attention deficit hyperactivity disorder
     Dosage: 1 TAB, BID
     Route: 048
  8. DECADRON S [Concomitant]
     Dosage: 10 ML, ORAL, QID
  9. DEXAMETHASONE [Concomitant]
     Active Substance: DEXAMETHASONE
     Dosage: 1 TAB, ORAL, BID
     Route: 048
     Dates: start: 20220525
  10. FIRST MOUTHWASH BLM [Concomitant]
     Active Substance: ALUMINUM HYDROXIDE\DIMETHICONE 410\DIPHENHYDRAMINE HYDROCHLORIDE\LIDOCAINE HYDROCHLORIDE\MAGNESIUM H
     Dosage: 5-10 ML, ORAL, QID
     Route: 048
  11. K-DUR [Concomitant]
     Active Substance: POTASSIUM CHLORIDE
  12. KEFLEX [Concomitant]
     Active Substance: CEPHALEXIN
     Dosage: 1 DOSAGE FORM, QID
     Route: 048
  13. KEFLEX [Concomitant]
     Active Substance: CEPHALEXIN
     Dosage: 1 DOSAGE FORM, QID
     Route: 048
  14. LIDOCAINE 5% EXTRA [Concomitant]
     Dosage: UNK, QD
  15. OMEPRAZOLE [Concomitant]
     Active Substance: OMEPRAZOLE
     Dosage: 1 TAB, ONCE DAILY
  16. PARAGARD T 380A [Concomitant]
     Active Substance: COPPER

REACTIONS (29)
  - Autoimmune haemolytic anaemia [Unknown]
  - Liver injury [Unknown]
  - Pathogen resistance [Recovered/Resolved]
  - Malignant neoplasm progression [Unknown]
  - Myalgia [Recovered/Resolved]
  - Lung opacity [Unknown]
  - Respiratory tract infection [Unknown]
  - Muscular weakness [Recovered/Resolved]
  - Tremor [Unknown]
  - Polydipsia [Not Recovered/Not Resolved]
  - Pulmonary mass [Unknown]
  - COVID-19 [Unknown]
  - Escherichia infection [Recovered/Resolved]
  - Blood chloride increased [Unknown]
  - Blood creatinine decreased [Unknown]
  - Blood phosphorus decreased [Unknown]
  - Granuloma [Unknown]
  - Flatulence [Unknown]
  - Protein total decreased [Unknown]
  - Memory impairment [Not Recovered/Not Resolved]
  - Joint stiffness [Unknown]
  - Blood glucose increased [Unknown]
  - Weight decreased [Unknown]
  - Blood calcium decreased [Unknown]
  - Dry skin [Unknown]
  - Decreased appetite [Unknown]
  - Arthralgia [Not Recovered/Not Resolved]
  - Pruritus [Not Recovered/Not Resolved]
  - Abdominal pain [Unknown]

NARRATIVE: CASE EVENT DATE: 20220101
